FAERS Safety Report 5304612-2 (Version None)
Quarter: 2007Q2

REPORT INFORMATION
  Report Type: 
  Country: None (occurrence: None)
  Receive Date: 20070423
  Receipt Date: 20070420
  Transmission Date: 20071010
  Serious: Yes (Other)
  Sender: FDA-Public Use
  Company Number: JP-JPN-A200701482

PATIENT
  Age: 57 Year
  Sex: Male

DRUGS (6)
  1. ZEFIX [Suspect]
     Indication: HEPATIC CIRRHOSIS
     Dosage: 100MG PER DAY
     Route: 048
     Dates: start: 20030424
  2. URSO [Concomitant]
     Indication: HEPATITIS
     Dosage: 600MG PER DAY
     Route: 048
     Dates: start: 20030326, end: 20040407
  3. ZANTAC [Concomitant]
     Dosage: 150MG PER DAY
     Route: 048
     Dates: start: 20030212
  4. FUROSEMIDE [Concomitant]
     Dosage: 20MG PER DAY
     Route: 048
     Dates: start: 20030212, end: 20040630
  5. ALDACTAZIDE [Concomitant]
     Dosage: 25MG PER DAY
     Route: 048
     Dates: start: 20030212, end: 20050104
  6. LIVACT [Concomitant]
     Indication: HEPATIC CIRRHOSIS
     Route: 048
     Dates: start: 20030618, end: 20041012

REACTIONS (4)
  - HEPATIC FUNCTION ABNORMAL [None]
  - HEPATITIS B [None]
  - JAUNDICE [None]
  - TRANSAMINASES INCREASED [None]
